FAERS Safety Report 16767978 (Version 2)
Quarter: 2019Q3

REPORT INFORMATION
  Report Type: Spontaneous
  Country: US (occurrence: US)
  Receive Date: 20190903
  Receipt Date: 20190906
  Transmission Date: 20191005
  Serious: Yes (Other)
  Sender: FDA-Public Use
  Company Number: US-JNJFOC-20190832326

PATIENT
  Sex: Female
  Weight: 78.54 kg

DRUGS (1)
  1. DURAGESIC [Suspect]
     Active Substance: FENTANYL
     Indication: SCOLIOSIS
     Route: 062
     Dates: start: 2014

REACTIONS (4)
  - Abnormal weight gain [Not Recovered/Not Resolved]
  - Ligament rupture [Unknown]
  - Accident [Unknown]
  - Scoliosis [Not Recovered/Not Resolved]

NARRATIVE: CASE EVENT DATE: 2014
